FAERS Safety Report 6325244-3 (Version None)
Quarter: 2009Q3

REPORT INFORMATION
  Report Type: 
  Country: None (occurrence: None)
  Receive Date: 20090824
  Receipt Date: 20090624
  Transmission Date: 20100115
  Serious: No
  Sender: FDA-Public Use
  Company Number: US-ABBOTT-09P-163-0582275-00

PATIENT
  Sex: Female
  Weight: 102.6 kg

DRUGS (12)
  1. NIASPAN [Suspect]
     Indication: BLOOD TRIGLYCERIDES INCREASED
     Route: 048
     Dates: start: 20090201, end: 20090618
  2. NIASPAN [Suspect]
     Route: 048
     Dates: start: 20090618
  3. LOVASTATIN [Concomitant]
     Indication: BLOOD TRIGLYCERIDES INCREASED
  4. HORMONE REPLACEMENT [Concomitant]
     Indication: HORMONE REPLACEMENT THERAPY
  5. DARVOCET [Concomitant]
     Indication: INSOMNIA
  6. DARVOCET [Concomitant]
     Indication: PAIN
  7. LORAZEPAM [Concomitant]
     Indication: INSOMNIA
  8. VITAMIN D [Concomitant]
     Indication: ROUTINE HEALTH MAINTENANCE
  9. CALCIUM [Concomitant]
     Indication: ROUTINE HEALTH MAINTENANCE
  10. MAGNESIUM [Concomitant]
     Indication: ROUTINE HEALTH MAINTENANCE
  11. CINNAMON EXTRACT TABLETS [Concomitant]
     Indication: ROUTINE HEALTH MAINTENANCE
  12. PRILOSEC [Concomitant]
     Indication: PROPHYLAXIS AGAINST GASTROINTESTINAL ULCER

REACTIONS (11)
  - ANXIETY [None]
  - ASTHENIA [None]
  - BLOOD TRIGLYCERIDES INCREASED [None]
  - DIARRHOEA [None]
  - DIZZINESS [None]
  - DYSPNOEA [None]
  - FEELING ABNORMAL [None]
  - HEADACHE [None]
  - MUSCULOSKELETAL PAIN [None]
  - NAUSEA [None]
  - PAIN IN EXTREMITY [None]
